FAERS Safety Report 12238534 (Version 2)
Quarter: 2016Q2

REPORT INFORMATION
  Report Type: Report from Study
  Country: GB (occurrence: GB)
  Receive Date: 20160405
  Receipt Date: 20160517
  Transmission Date: 20160815
  Serious: Yes (Hospitalization, Other)
  Sender: FDA-Public Use
  Company Number: GB-BEH-2016060798

PATIENT
  Age: 19 Year
  Sex: Male

DRUGS (1)
  1. FIBRINOGEN [Suspect]
     Active Substance: FIBRINOGEN HUMAN
     Indication: TRAUMATIC HAEMORRHAGE
     Dates: start: 20160314

REACTIONS (3)
  - Peripheral ischaemia [Recovered/Resolved]
  - Compartment syndrome [Recovered/Resolved with Sequelae]
  - Wound haemorrhage [Not Recovered/Not Resolved]

NARRATIVE: CASE EVENT DATE: 20160315
